FAERS Safety Report 7843244-9 (Version None)
Quarter: 2011Q4

REPORT INFORMATION
  Report Type: 
  Country: None (occurrence: None)
  Receive Date: 20111025
  Receipt Date: 20111020
  Transmission Date: 20120403
  Serious: No
  Sender: FDA-Public Use
  Company Number: US-PFIZER INC-2010147508

PATIENT
  Sex: Male
  Weight: 77.098 kg

DRUGS (4)
  1. PRISTIQ [Suspect]
     Indication: OBSESSIVE-COMPULSIVE DISORDER
     Dosage: 50 MG, DAILY
     Route: 048
     Dates: start: 20110701
  2. CLONAZEPAM [Suspect]
     Dosage: 0.75 MG, DAILY
     Route: 048
  3. PRISTIQ [Suspect]
     Indication: ANXIETY
  4. CLONAZEPAM [Suspect]
     Indication: ANXIETY
     Dosage: 0.5 MG, DAILY
     Route: 048
     Dates: start: 20100701

REACTIONS (4)
  - HYPERTENSION [None]
  - FEELING COLD [None]
  - HYPERHIDROSIS [None]
  - FEELING HOT [None]
